FAERS Safety Report 18193181 (Version 3)
Quarter: 2020Q4

REPORT INFORMATION
  Report Type: Report from Study
  Country: None (occurrence: US)
  Receive Date: 20200825
  Receipt Date: 20201009
  Transmission Date: 20210113
  Serious: Yes (Hospitalization)
  Sender: FDA-Public Use
  Company Number: US-ABBVIE-20K-163-3416736-00

PATIENT
  Sex: Male
  Weight: 93.98 kg

DRUGS (2)
  1. VENCLEXTA [Suspect]
     Active Substance: VENETOCLAX
     Indication: ATRIAL FIBRILLATION
  2. VENCLEXTA [Suspect]
     Active Substance: VENETOCLAX
     Indication: NON-HODGKIN^S LYMPHOMA
     Dosage: STARTING PACK TAKE 4 TABLET(S) BY MOUTH EVERY DAY WITH MEALS
     Route: 048
     Dates: start: 2020

REACTIONS (6)
  - Off label use [Unknown]
  - Pollakiuria [Unknown]
  - Stent placement [Recovered/Resolved]
  - Atrial fibrillation [Unknown]
  - Coronary arterial stent insertion [Recovered/Resolved]
  - Frequent bowel movements [Unknown]

NARRATIVE: CASE EVENT DATE: 2020
